FAERS Safety Report 6849333-X (Version None)
Quarter: 2010Q3

REPORT INFORMATION
  Report Type: 
  Country: None (occurrence: None)
  Receive Date: 20100716
  Receipt Date: 20070924
  Transmission Date: 20110219
  Serious: No
  Sender: FDA-Public Use
  Company Number: US-PFIZER INC-2007082275

PATIENT
  Sex: Female

DRUGS (2)
  1. CHANTIX [Suspect]
  2. NICODERM [Concomitant]

REACTIONS (2)
  - NAUSEA [None]
  - OROPHARYNGEAL PAIN [None]
